FAERS Safety Report 6863567-X (Version None)
Quarter: 2010Q3

REPORT INFORMATION
  Report Type: 
  Country: None (occurrence: None)
  Receive Date: 20100721
  Receipt Date: 20080304
  Transmission Date: 20110219
  Serious: No
  Sender: FDA-Public Use
  Company Number: US-PFIZER INC-2008022438

PATIENT
  Sex: Female
  Weight: 59 kg

DRUGS (2)
  1. CHANTIX [Suspect]
     Indication: SMOKING CESSATION THERAPY
     Dates: start: 20070701, end: 20071101
  2. SODIUM CARBONATE [Suspect]

REACTIONS (4)
  - ANXIETY [None]
  - ERYTHEMA [None]
  - PALPITATIONS [None]
  - TREMOR [None]
